FAERS Safety Report 21128897 (Version 2)
Quarter: 2022Q3

REPORT INFORMATION
  Report Type: Spontaneous
  Country: AT (occurrence: AT)
  Receive Date: 20220725
  Receipt Date: 20220808
  Transmission Date: 20221027
  Serious: Yes (Other)
  Sender: FDA-Public Use
  Company Number: AT-002147023-NVSC2022AT155857

PATIENT
  Age: 73 Year
  Sex: Female

DRUGS (3)
  1. PEMETREXED [Suspect]
     Active Substance: PEMETREXED
     Indication: Product used for unknown indication
     Dosage: UNK, UNKNOWN
     Route: 065
     Dates: start: 201401, end: 201405
  2. CISPLATIN [Suspect]
     Active Substance: CISPLATIN
     Indication: Lung adenocarcinoma stage IV
     Dosage: UNK, UNKNOWN
     Route: 065
     Dates: start: 201401, end: 201403
  3. DEXAMETHASONE [Suspect]
     Active Substance: DEXAMETHASONE
     Indication: Oedema
     Dosage: 8 MG, UNKNOWN
     Route: 065
     Dates: start: 201401, end: 201403

REACTIONS (4)
  - Polyneuropathy [Unknown]
  - Dysaesthesia [Unknown]
  - Hyperaesthesia [Unknown]
  - Paraesthesia [Unknown]
